FAERS Safety Report 8247175-4 (Version None)
Quarter: 2012Q1

REPORT INFORMATION
  Report Type: 
  Country: None (occurrence: None)
  Receive Date: 20120330
  Receipt Date: 20120318
  Transmission Date: 20120608
  Serious: Yes (Other)
  Sender: FDA-Public Use
  Company Number: ES-ELI_LILLY_AND_COMPANY-ES201203005455

PATIENT
  Sex: Male
  Weight: 85 kg

DRUGS (4)
  1. METFORMIN HYDROCHLORIDE [Concomitant]
     Indication: DIABETES MELLITUS
     Dosage: 850/50MG, Q12H
     Route: 048
  2. BITENSIL DIU [Concomitant]
     Indication: HYPERTENSION
     Dosage: 20/12.5 MG, QD
     Route: 048
  3. ALIMTA [Suspect]
     Indication: LUNG NEOPLASM MALIGNANT
     Dosage: UNK, EVERY 3 WEEKS
     Route: 042
     Dates: start: 20120305
  4. SIMVASTATIN [Concomitant]
     Indication: DYSLIPIDAEMIA
     Dosage: 20 MG, QD
     Route: 048

REACTIONS (1)
  - HYPERGLYCAEMIA [None]
